FAERS Safety Report 11742160 (Version 2)
Quarter: 2015Q4

REPORT INFORMATION
  Report Type: Spontaneous
  Country: JP (occurrence: JP)
  Receive Date: 20151116
  Receipt Date: 20151217
  Transmission Date: 20160304
  Serious: Yes (Hospitalization, Other)
  Sender: FDA-Public Use
  Company Number: JP-ASTELLAS-2015JP022460

PATIENT
  Age: 36 Year
  Sex: Female

DRUGS (13)
  1. CLIDAMACIN [Concomitant]
     Active Substance: CLINDAMYCIN\CLINDAMYCIN PHOSPHATE
     Indication: SKIN ULCER
     Route: 041
  2. GANCICLOVIR. [Concomitant]
     Active Substance: GANCICLOVIR
     Indication: SKIN ULCER
     Route: 065
  3. GAMMA GLOBULIN [Concomitant]
     Active Substance: IMMUNE GLOBULIN NOS
     Indication: SKIN ULCER
     Route: 065
  4. FUNGUARD [Suspect]
     Active Substance: MICAFUNGIN SODIUM
     Indication: SKIN ULCER
     Route: 041
     Dates: start: 201311
  5. FUNGUARD [Suspect]
     Active Substance: MICAFUNGIN SODIUM
     Indication: ANTIFUNGAL TREATMENT
     Route: 041
  6. FUCIDIN                            /00065701/ [Concomitant]
     Indication: SKIN ULCER
     Dosage: UNK UNK, UNKNOWN FREQ.
     Route: 061
     Dates: start: 201310
  7. MEROPENEM. [Concomitant]
     Active Substance: MEROPENEM
     Indication: SKIN ULCER
     Route: 041
  8. HYDROCORTISONE SODIUM SUCCINATE [Concomitant]
     Active Substance: HYDROCORTISONE SODIUM SUCCINATE
     Indication: MIXED CONNECTIVE TISSUE DISEASE
     Dosage: 200-1000 MG, ONCE DAILY
     Route: 065
  9. AMPICILLIN [Concomitant]
     Active Substance: AMPICILLIN
     Indication: SKIN ULCER
     Route: 041
  10. PIPERACILLIN TAZOBACTAM PA [Concomitant]
     Active Substance: PIPERACILLIN SODIUM\TAZOBACTAM SODIUM
     Indication: SKIN ULCER
     Route: 065
  11. VANCOMYCIN [Concomitant]
     Active Substance: VANCOMYCIN
     Indication: SKIN ULCER
     Route: 065
  12. METHYLPREDNISOLONE. [Concomitant]
     Active Substance: METHYLPREDNISOLONE
     Indication: MIXED CONNECTIVE TISSUE DISEASE
     Route: 065
     Dates: start: 1999
  13. CICLOSPORIN [Concomitant]
     Active Substance: CYCLOSPORINE
     Indication: MIXED CONNECTIVE TISSUE DISEASE
     Route: 065
     Dates: start: 201310

REACTIONS (1)
  - Pancreatitis [Unknown]
